FAERS Safety Report 16426858 (Version 1)
Quarter: 2019Q2

REPORT INFORMATION
  Report Type: Spontaneous
  Country: BR (occurrence: BR)
  Receive Date: 20190613
  Receipt Date: 20190613
  Transmission Date: 20190711
  Serious: Yes (Hospitalization)
  Sender: FDA-Public Use
  Company Number: BR-SA-2019SA155422

PATIENT
  Sex: Male
  Weight: 75 kg

DRUGS (2)
  1. LANTUS [Suspect]
     Active Substance: INSULIN GLARGINE
     Indication: DIABETES MELLITUS
     Dosage: 50 IU AT MORNING AND 16 IU AT NIGHT, BID,
     Route: 058
     Dates: start: 2014
  2. METFORMIN [METFORMIN HYDROCHLORIDE] [Concomitant]
     Active Substance: METFORMIN HYDROCHLORIDE
     Indication: DIABETES MELLITUS MANAGEMENT
     Dosage: 3 (UNIT NOT REPORTED) AFTER THE MAIN MEALS
     Route: 048
     Dates: start: 2014

REACTIONS (6)
  - Dizziness [Recovered/Resolved]
  - Blood glucose increased [Recovered/Resolved]
  - Somnolence [Recovered/Resolved]
  - Inappropriate schedule of product administration [Unknown]
  - Vomiting [Recovered/Resolved]
  - Device operational issue [Unknown]

NARRATIVE: CASE EVENT DATE: 201810
